FAERS Safety Report 15879622 (Version 2)
Quarter: 2019Q1

REPORT INFORMATION
  Report Type: Spontaneous
  Country: BE (occurrence: BE)
  Receive Date: 20190128
  Receipt Date: 20190128
  Transmission Date: 20190417
  Serious: Yes (Hospitalization, Other)
  Sender: FDA-Public Use
  Company Number: BE-JUBILANT CADISTA PHARMACEUTICALS-2019JUB00025

PATIENT
  Age: 57 Year
  Sex: Female

DRUGS (3)
  1. DENOSUMAB [Suspect]
     Active Substance: DENOSUMAB
     Route: 065
  2. PANTOPRAZOLE SODIUM. [Suspect]
     Active Substance: PANTOPRAZOLE SODIUM
  3. LOOP DIURETICS [Suspect]
     Active Substance: UNSPECIFIED INGREDIENT
     Indication: OEDEMA PERIPHERAL
     Dosage: ^OCCASIONAL USE^
     Route: 065

REACTIONS (3)
  - Hypokalaemia [Unknown]
  - Tetany [Recovered/Resolved]
  - Hypomagnesaemia [Unknown]
